FAERS Safety Report 8012968-5 (Version None)
Quarter: 2011Q4

REPORT INFORMATION
  Report Type: 
  Country: None (occurrence: None)
  Receive Date: 20111229
  Receipt Date: 20111223
  Transmission Date: 20120403
  Serious: Yes (Other)
  Sender: FDA-Public Use
  Company Number: US-BAYER-2011-104509

PATIENT
  Age: 66 Year
  Sex: Female

DRUGS (6)
  1. COUMADIN [Concomitant]
  2. SKELAXIN [Concomitant]
  3. PERCOCET [Concomitant]
     Indication: PAIN
  4. SORAFENIB (RAF KINASE INHIBITOR) [Suspect]
     Indication: THYROID CANCER
     Dosage: 400 MG, BID
     Dates: start: 20111020, end: 20111222
  5. TYLENOL W/ CODEINE NO. 3 [Concomitant]
     Dosage: UNK UNK, PRN
  6. LORTAB [Concomitant]

REACTIONS (27)
  - DYSPNOEA [None]
  - OXYGEN SATURATION DECREASED [None]
  - PAIN IN EXTREMITY [None]
  - ARTHRALGIA [None]
  - RASH [None]
  - HYPOAESTHESIA [None]
  - CONSTIPATION [None]
  - MUSCULOSKELETAL PAIN [None]
  - INSOMNIA [None]
  - PROTHROMBIN TIME PROLONGED [None]
  - ANXIETY [None]
  - ERYTHEMA [None]
  - MYALGIA [None]
  - RASH MORBILLIFORM [None]
  - MUSCLE SPASMS [None]
  - RASH GENERALISED [None]
  - BUNION [None]
  - FATIGUE [None]
  - DECREASED APPETITE [None]
  - CHEILITIS [None]
  - STOMATITIS [None]
  - AMNESIA [None]
  - MUSCULOSKELETAL STIFFNESS [None]
  - HEADACHE [None]
  - PRURITUS [None]
  - NECK PAIN [None]
  - NAUSEA [None]
